FAERS Safety Report 4907301-9 (Version None)
Quarter: 2006Q1

REPORT INFORMATION
  Report Type: 
  Country: None (occurrence: None)
  Receive Date: 20060208
  Receipt Date: 20060208
  Transmission Date: 20060701
  Serious: Yes (Hospitalization)
  Sender: FDA-Public Use
  Company Number: None

PATIENT
  Age: 57 Year
  Sex: Male
  Weight: 65.318 kg

DRUGS (20)
  1. CLOPIDOGREL [Suspect]
     Indication: CEREBROVASCULAR INSUFFICIENCY
     Dosage: 75 MG PO QD
     Route: 048
  2. CLOPIDOGREL [Suspect]
     Indication: PROPHYLAXIS
     Dosage: 75 MG PO QD
     Route: 048
  3. NAPROXEN [Suspect]
     Indication: INFLAMMATION
     Dosage: 500 MG PO BID PRN  2.5 MONTH
     Route: 048
  4. NAPROXEN [Suspect]
     Indication: PAIN
     Dosage: 500 MG PO BID PRN  2.5 MONTH
     Route: 048
  5. COMBIVENT [Concomitant]
  6. AMANTADINE HCL [Concomitant]
  7. BACLOFEN [Concomitant]
  8. TYLENOL W/ CODEINE NO. 3 [Concomitant]
  9. CYANOCOBALAMIN [Concomitant]
  10. FLUNISOLIDE [Concomitant]
  11. FLUOXETINE [Concomitant]
  12. FOLIC ACID [Concomitant]
  13. FORMOTEROL [Concomitant]
  14. GABAPENTIN [Concomitant]
  15. GG600/PE120 [Concomitant]
  16. LISINOPRIL [Concomitant]
  17. MORPHINE SO4 [Concomitant]
  18. PSYLLIUM PO [Concomitant]
  19. RANITIDINE [Concomitant]
  20. SIMVASTATIN [Concomitant]

REACTIONS (6)
  - ALCOHOL USE [None]
  - DIARRHOEA HAEMORRHAGIC [None]
  - EROSIVE DUODENITIS [None]
  - GASTROINTESTINAL ULCER [None]
  - MELAENA [None]
  - NAUSEA [None]
